FAERS Safety Report 11112361 (Version 1)
Quarter: 2015Q2

REPORT INFORMATION
  Report Type: Spontaneous
  Country: US (occurrence: None)
  Receive Date: 20150513
  Receipt Date: 20150513
  Transmission Date: 20150821
  Serious: No
  Sender: FDA-Public Use
  Company Number: None

PATIENT
  Age: 90 Year
  Sex: Male
  Weight: 65 kg

DRUGS (2)
  1. ENOXAPARIN [Suspect]
     Active Substance: ENOXAPARIN
     Indication: DEEP VEIN THROMBOSIS
     Route: 058
     Dates: start: 20150510, end: 20150512
  2. ENOXAPARIN [Suspect]
     Active Substance: ENOXAPARIN
     Indication: DISEASE RECURRENCE
     Route: 058
     Dates: start: 20150510, end: 20150512

REACTIONS (2)
  - Injection site haemorrhage [None]
  - Needle issue [None]

NARRATIVE: CASE EVENT DATE: 20150512
